FAERS Safety Report 14385670 (Version 2)
Quarter: 2018Q3

REPORT INFORMATION
  Report Type: Spontaneous
  Country: US (occurrence: US)
  Receive Date: 20180115
  Receipt Date: 20180716
  Transmission Date: 20181010
  Serious: Yes (Other)
  Sender: FDA-Public Use
  Company Number: US-SA-2017SA018635

PATIENT
  Age: 61 Year
  Sex: Female
  Weight: 61 kg

DRUGS (9)
  1. TAXOTERE [Suspect]
     Active Substance: DOCETAXEL
     Dosage: 148 MG,Q3W
     Route: 042
     Dates: start: 20121104, end: 20121104
  2. TAXOTERE [Suspect]
     Active Substance: DOCETAXEL
     Dosage: 148 MG,Q3W
     Route: 042
     Dates: start: 20120803, end: 20120803
  3. METFORMIN [Concomitant]
     Active Substance: METFORMIN HYDROCHLORIDE
     Dosage: UNK UNK, UNK
     Route: 065
  4. DIPHENHYDRAMINE. [Concomitant]
     Active Substance: DIPHENHYDRAMINE
     Dosage: 50 MG,UNK
     Route: 065
  5. HERCEPTIN [Concomitant]
     Active Substance: TRASTUZUMAB
     Dosage: 520 MG,Q3W
     Route: 042
     Dates: start: 20130108, end: 20130108
  6. ONDANSETRON [Concomitant]
     Active Substance: ONDANSETRON
     Dosage: 24 MG,UNK
     Route: 048
  7. DEXAMETHASONE. [Concomitant]
     Active Substance: DEXAMETHASONE
     Dosage: 10 MG,UNK
     Route: 042
  8. CARBOPLATIN. [Concomitant]
     Active Substance: CARBOPLATIN
     Dosage: 646 MG,Q3W
     Route: 042
     Dates: start: 20130108, end: 20130108
  9. CARBOPLATIN. [Concomitant]
     Active Substance: CARBOPLATIN
     Dosage: 646 MG,Q3W
     Route: 042

REACTIONS (6)
  - Anxiety [Unknown]
  - Impaired quality of life [Unknown]
  - Alopecia [Recovering/Resolving]
  - Emotional distress [Unknown]
  - Psychological trauma [Unknown]
  - Pain [Unknown]

NARRATIVE: CASE EVENT DATE: 20130501
